FAERS Safety Report 6642772-1 (Version None)
Quarter: 2010Q1

REPORT INFORMATION
  Report Type: 
  Country: None (occurrence: None)
  Receive Date: 20100316
  Receipt Date: 20100308
  Transmission Date: 20100710
  Serious: Yes (Hospitalization)
  Sender: FDA-Public Use
  Company Number: FR-1181118

PATIENT
  Age: 43 Year
  Sex: Male

DRUGS (6)
  1. TOBRADEX          (TOBRADEX)   OPHTHALMIC SUSPENSION [Suspect]
     Route: 047
  2. ISENTRESS [Suspect]
     Dosage: ORAL
     Route: 048
     Dates: start: 20090101
  3. TRUVADA [Suspect]
     Dates: start: 20070101
  4. EFFEXOR [Suspect]
     Dosage: ORAL
     Route: 048
  5. CROMABAK (CROMOGLICATE SODIUM) [Suspect]
     Dosage: ORAL
     Route: 048
  6. FLUIDABAK (POLYVIDONE) [Suspect]
     Dosage: ORAL
     Route: 048

REACTIONS (1)
  - HEADACHE [None]
